FAERS Safety Report 6770641-5 (Version None)
Quarter: 2010Q2

REPORT INFORMATION
  Report Type: 
  Country: None (occurrence: None)
  Receive Date: 20100520
  Receipt Date: 20090924
  Transmission Date: 20101027
  Serious: Yes (Other)
  Sender: FDA-Public Use
  Company Number: 2009274601

PATIENT
  Age: 67 Year
  Sex: Female

DRUGS (12)
  1. PROVERA [Suspect]
     Indication: HORMONE REPLACEMENT THERAPY
     Dosage: 10 MG, ORAL
     Route: 048
     Dates: start: 19870501, end: 19960501
  2. PREMARIN [Suspect]
     Indication: HORMONE REPLACEMENT THERAPY
     Dosage: 0.625 MG
     Dates: start: 19870501, end: 19960501
  3. PREMPRO [Suspect]
     Indication: HORMONE REPLACEMENT THERAPY
     Dosage: 0.625/2.5MG
     Dates: start: 19960501, end: 20021201
  4. CARDIZEM [Concomitant]
  5. QUINAPRIL HCL [Concomitant]
  6. PRILOSEC (OMEPRAZOLE) [Concomitant]
  7. VALIUM [Concomitant]
  8. NORTRIPTYLINE HCL [Concomitant]
  9. FUROSEMIDE [Concomitant]
  10. PLAQUENIL [Concomitant]
  11. EVOXAC [Concomitant]
  12. POTASSIUM CHLORIDE [Concomitant]

REACTIONS (1)
  - BREAST CANCER [None]
